FAERS Safety Report 4627819-6 (Version None)
Quarter: 2005Q2

REPORT INFORMATION
  Report Type: 
  Country: None (occurrence: None)
  Receive Date: 20050406
  Receipt Date: 20050325
  Transmission Date: 20051028
  Serious: Yes (Hospitalization)
  Sender: FDA-Public Use
  Company Number: 200511124FR

PATIENT
  Age: 20 Year
  Sex: Male

DRUGS (4)
  1. FLAGYL [Suspect]
     Route: 042
     Dates: start: 20041030, end: 20041110
  2. CLAFORAN [Suspect]
     Route: 042
     Dates: start: 20041103, end: 20041108
  3. PERFALGAN [Suspect]
     Route: 042
     Dates: start: 20041029, end: 20041108
  4. LOVENOX [Concomitant]

REACTIONS (3)
  - CHOLESTASIS [None]
  - CYTOLYTIC HEPATITIS [None]
  - HEPATITIS [None]
